FAERS Safety Report 19268431 (Version 2)
Quarter: 2021Q3

REPORT INFORMATION
  Report Type: Spontaneous
  Country: US (occurrence: US)
  Receive Date: 20210518
  Receipt Date: 20210925
  Transmission Date: 20211014
  Serious: No
  Sender: FDA-Public Use
  Company Number: US-SA-2021SA160061

PATIENT
  Sex: Female
  Weight: 94 kg

DRUGS (1)
  1. DUPIXENT [Suspect]
     Active Substance: DUPILUMAB
     Indication: NEURODERMATITIS
     Dosage: 300 MG, QOW
     Route: 058

REACTIONS (6)
  - Dry skin [Unknown]
  - Product dose omission issue [Unknown]
  - Pain [Unknown]
  - Eczema [Unknown]
  - Skin haemorrhage [Unknown]
  - Skin fissures [Unknown]
